FAERS Safety Report 5427838-6 (Version None)
Quarter: 2007Q3

REPORT INFORMATION
  Report Type: 
  Country: None (occurrence: None)
  Receive Date: 20070828
  Receipt Date: 20070815
  Transmission Date: 20080115
  Serious: Yes (Death)
  Sender: FDA-Public Use
  Company Number: US-TYCO HEALTHCARE/MALLINCKRODT-T200700953

PATIENT

DRUGS (5)
  1. METHADOSE [Suspect]
     Indication: GROIN PAIN
  2. XANAX [Concomitant]
  3. BLOOD VESSEL RELAXER [Concomitant]
     Indication: POST-TRAUMATIC STRESS DISORDER
  4. HYPNOTICS AND SEDATIVES [Concomitant]
     Indication: INSOMNIA
  5. ANTIDEPRESSANTS [Concomitant]
     Indication: NIGHTMARE

REACTIONS (3)
  - LIP DISCOLOURATION [None]
  - LOSS OF CONSCIOUSNESS [None]
  - OVERDOSE [None]
